FAERS Safety Report 7531674-4 (Version None)
Quarter: 2011Q2

REPORT INFORMATION
  Report Type: 
  Country: None (occurrence: None)
  Receive Date: 20110608
  Receipt Date: 20110601
  Transmission Date: 20111010
  Serious: Yes (Hospitalization)
  Sender: FDA-Public Use
  Company Number: HU-B.I. PHARMACEUTICALS,INC./RIDGEFIELD-2011-AP-00291AP

PATIENT
  Age: 75 Year
  Sex: Female
  Weight: 81 kg

DRUGS (8)
  1. AMLODIPINE [Concomitant]
     Dosage: 10 MG
     Route: 048
  2. GLIMEPIRIDE [Concomitant]
     Dosage: 2 MG
     Route: 048
  3. PRADAXA [Suspect]
     Dosage: 220 MG
     Route: 048
     Dates: start: 20110517, end: 20110518
  4. PRADAXA [Suspect]
     Indication: THROMBOSIS PROPHYLAXIS
     Dosage: 110 MG
     Route: 048
     Dates: start: 20110516, end: 20110516
  5. PERINDOPRIL ERBUMINE [Concomitant]
     Dosage: 4 MG
     Route: 048
  6. ATORVASTATIN [Concomitant]
     Dosage: 20 MG
     Route: 048
  7. METFORMIN HCL [Concomitant]
     Dosage: 1000 MG
     Route: 048
  8. ASPIRIN [Concomitant]
     Dosage: 100 MG
     Route: 048

REACTIONS (2)
  - ISCHAEMIC STROKE [None]
  - SOMNOLENCE [None]
